FAERS Safety Report 18235550 (Version 2)
Quarter: 2020Q3

REPORT INFORMATION
  Report Type: Spontaneous
  Country: US (occurrence: US)
  Receive Date: 20200905
  Receipt Date: 20200922
  Transmission Date: 20201103
  Serious: Yes (Hospitalization, Other)
  Sender: FDA-Public Use
  Company Number: US-AUROBINDO-AUR-APL-2020-046147

PATIENT
  Age: 17 Year
  Sex: Male

DRUGS (13)
  1. HYDROXYCHLOROQUINE [Concomitant]
     Active Substance: HYDROXYCHLOROQUINE
     Indication: PRODUCT USED FOR UNKNOWN INDICATION
     Dosage: 200 MILLIGRAM, ONCE A DAY
     Route: 065
  2. TACROLIMUS. [Concomitant]
     Active Substance: TACROLIMUS
     Indication: IMMUNOSUPPRESSANT DRUG THERAPY
     Dosage: 8 MILLIGRAM, ONCE A DAY, (LONG?ACTING  (GOAL RANGE 6?8 NG/ML))
     Route: 065
  3. METHYLPREDNISOLONE. [Suspect]
     Active Substance: METHYLPREDNISOLONE
     Indication: TRANSPLANT REJECTION
     Dosage: 60 MILLIGRAM, ONCE A DAY
     Route: 042
  4. AMLODIPINE [Concomitant]
     Active Substance: AMLODIPINE BESYLATE
     Indication: PRODUCT USED FOR UNKNOWN INDICATION
     Dosage: 5 MILLIGRAM, TWO TIMES A DAY
     Route: 065
  5. SODIUM BICARBONATE. [Concomitant]
     Active Substance: SODIUM BICARBONATE
     Indication: PRODUCT USED FOR UNKNOWN INDICATION
     Dosage: 650 MILLIGRAM, TWO TIMES A DAY
     Route: 065
  6. RAPAMUNE [Interacting]
     Active Substance: SIROLIMUS
     Indication: TRANSPLANT REJECTION
     Dosage: 1 DOSAGE FORM, ONCE A DAY, (0.01 MG/KG)
     Route: 065
  7. CANDESARTAN. [Concomitant]
     Active Substance: CANDESARTAN
     Indication: PRODUCT USED FOR UNKNOWN INDICATION
     Dosage: 4 MILLIGRAM, TWO TIMES A DAY
     Route: 065
  8. PREDNISONE. [Interacting]
     Active Substance: PREDNISONE
     Dosage: UNK (PREDNISON WAS TAPERED DOWN TO HIS FORMER REGIMEN OF 10 MG DAILY)
     Route: 065
  9. PREDNISONE. [Interacting]
     Active Substance: PREDNISONE
     Indication: IMMUNOSUPPRESSANT DRUG THERAPY
     Dosage: 10 MILLIGRAM, ONCE A DAY
     Route: 065
  10. VALGANCICLOVIR. [Concomitant]
     Active Substance: VALGANCICLOVIR
     Indication: CYTOMEGALOVIRUS INFECTION
     Dosage: 450 MILLIGRAM, ONCE A DAY
     Route: 065
  11. IMMUNOGLOBULIN [Concomitant]
     Indication: TRANSPLANT REJECTION
     Dosage: UNK
     Route: 042
  12. CEFALEXIN [Concomitant]
     Active Substance: CEPHALEXIN
     Indication: PRODUCT USED FOR UNKNOWN INDICATION
     Dosage: 250 MILLIGRAM, ONCE A DAY
     Route: 065
  13. CLONIDINE. [Concomitant]
     Active Substance: CLONIDINE
     Indication: PRODUCT USED FOR UNKNOWN INDICATION
     Dosage: 0.2 MILLIGRAM, ONCE A DAY
     Route: 065

REACTIONS (11)
  - Pulmonary toxicity [Recovered/Resolved]
  - Weight increased [Recovered/Resolved]
  - Interstitial lung disease [Recovered/Resolved]
  - Tachycardia [Recovered/Resolved]
  - Respiratory failure [Recovered/Resolved]
  - Hypoxia [Recovered/Resolved]
  - Respiratory distress [Recovered/Resolved]
  - Hypertension [Recovered/Resolved]
  - Pulmonary oedema [Recovered/Resolved]
  - Drug interaction [Recovered/Resolved]
  - Immune-mediated pneumonitis [Recovered/Resolved]
